FAERS Safety Report 7842597-5 (Version None)
Quarter: 2011Q4

REPORT INFORMATION
  Report Type: 
  Country: None (occurrence: None)
  Receive Date: 20111025
  Receipt Date: 20111020
  Transmission Date: 20120403
  Serious: Yes (Other)
  Sender: FDA-Public Use
  Company Number: US-PFIZER INC-2010165157

PATIENT
  Age: 76 Year
  Sex: Female
  Weight: 58.957 kg

DRUGS (3)
  1. IBUPROFEN (ADVIL) [Suspect]
     Indication: ARTHRALGIA
     Dosage: 1-2 TABLETS, 4-6 HOURS
     Route: 048
     Dates: start: 20101128, end: 20101201
  2. ASPIRIN [Concomitant]
  3. DOXYCYCLINE [Concomitant]

REACTIONS (3)
  - URINE FLOW DECREASED [None]
  - DYSURIA [None]
  - OVERDOSE [None]
